FAERS Safety Report 23258339 (Version 1)
Quarter: 2023Q4

REPORT INFORMATION
  Report Type: Report from Study
  Country: US (occurrence: US)
  Receive Date: 20231204
  Receipt Date: 20231204
  Transmission Date: 20240110
  Serious: Yes (Hospitalization)
  Sender: FDA-Public Use
  Company Number: US-MYLANLABS-2023M1127588

PATIENT
  Age: 7 Decade

DRUGS (1)
  1. HEPARIN [Suspect]
     Active Substance: HEPARIN SODIUM
     Indication: Thrombosis prophylaxis
     Dosage: UNK, TID; 5000 UNITS THRICE DAILY
     Route: 058

REACTIONS (3)
  - Heparin-induced thrombocytopenia [Recovered/Resolved]
  - Vasospasm [Unknown]
  - Drug ineffective [Unknown]
